FAERS Safety Report 9373530 (Version 2)
Quarter: 2013Q3

REPORT INFORMATION
  Report Type: Report from Study
  Country: ES (occurrence: ES)
  Receive Date: 20130627
  Receipt Date: 20130702
  Transmission Date: 20140515
  Serious: Yes (Death)
  Sender: FDA-Public Use
  Company Number: PHHO2013ES008468

PATIENT
  Age: 83 Year
  Sex: Female
  Weight: 60.9 kg

DRUGS (8)
  1. AFINITOR [Suspect]
     Indication: BREAST CANCER METASTATIC
     Dosage: 10 MG, QD
     Route: 048
     Dates: start: 20130315, end: 20130620
  2. EXEMESTANE [Suspect]
     Indication: BREAST CANCER METASTATIC
     Dosage: 25 MG, QD
     Route: 048
     Dates: start: 20130315, end: 20130620
  3. ENALAPRIL [Concomitant]
     Indication: HYPERTENSION
     Dosage: 20 MG, QD
     Dates: start: 20130316
  4. PAROXETINE [Concomitant]
     Indication: ANXIETY
     Dosage: 20 MG, QD
     Dates: start: 20090803
  5. DEXIBUPROFEN [Concomitant]
     Indication: PAIN
     Dosage: 300 MG, BID
     Dates: start: 20121204
  6. ESOMEPRAZOL [Concomitant]
     Indication: PROPHYLAXIS
     Dosage: 40 MG, QD
     Dates: start: 20110426
  7. NISTATINA [Concomitant]
     Indication: STOMATITIS
     Dosage: UNK
     Dates: start: 20130103
  8. ZALDIAR [Concomitant]
     Indication: PAIN
     Dosage: UNK
     Dates: start: 20130404

REACTIONS (1)
  - Death [Fatal]
